FAERS Safety Report 8211690-X (Version None)
Quarter: 2012Q1

REPORT INFORMATION
  Report Type: 
  Country: None (occurrence: None)
  Receive Date: 20120228
  Receipt Date: 20110419
  Transmission Date: 20120608
  Serious: Yes (Life-Threatening, Hospitalization, Other)
  Sender: FDA-Public Use
  Company Number: RB-26239-2011

PATIENT
  Sex: Male
  Weight: 3.2659 kg

DRUGS (2)
  1. SUBUTEX [Suspect]
     Indication: DRUG DEPENDENCE
     Dosage: (28 MG TRANSPLACENTAL) ; (16 MG TRANSPLACENTAL)
     Route: 064
     Dates: start: 20100601, end: 20100601
  2. SUBUTEX [Suspect]
     Indication: DRUG DEPENDENCE
     Dosage: (28 MG TRANSPLACENTAL) ; (16 MG TRANSPLACENTAL)
     Route: 064
     Dates: start: 20100601, end: 20110317

REACTIONS (1)
  - DRUG WITHDRAWAL SYNDROME NEONATAL [None]
